FAERS Safety Report 8339610-8 (Version None)
Quarter: 2012Q2

REPORT INFORMATION
  Report Type: 
  Country: None (occurrence: None)
  Receive Date: 20120507
  Receipt Date: 20110524
  Transmission Date: 20120825
  Serious: No
  Sender: FDA-Public Use
  Company Number: US-TEVA-2011002628

PATIENT
  Sex: Female
  Weight: 68.1 kg

DRUGS (1)
  1. NUVIGIL [Suspect]
     Indication: DEPRESSION
     Route: 048

REACTIONS (1)
  - SKIN WRINKLING [None]
